FAERS Safety Report 4738726-2 (Version None)
Quarter: 2005Q3

REPORT INFORMATION
  Report Type: 
  Country: None (occurrence: None)
  Receive Date: 20050808
  Receipt Date: 20050808
  Transmission Date: 20060218
  Serious: Yes (Life-Threatening, Hospitalization)
  Sender: FDA-Public Use
  Company Number: None

PATIENT
  Sex: Female
  Weight: 85.1 kg

DRUGS (3)
  1. LEXAPRO [Suspect]
     Indication: DEPRESSION
     Dosage: 60MG   ONCE DAILY    ORAL
     Route: 048
  2. SYNTHROID [Concomitant]
  3. FEMHRT [Concomitant]

REACTIONS (5)
  - ABDOMINAL PAIN [None]
  - CHROMATURIA [None]
  - FAECES DISCOLOURED [None]
  - NAUSEA [None]
  - SCLERAL DISCOLOURATION [None]
